FAERS Safety Report 10209253 (Version 1)
Quarter: 2014Q2

REPORT INFORMATION
  Report Type: Spontaneous
  Country: US (occurrence: US)
  Receive Date: 20140530
  Receipt Date: 20140530
  Transmission Date: 20141212
  Serious: Yes (Other)
  Sender: FDA-Public Use
  Company Number: US-ASTRAZENECA-2014SE35890

PATIENT
  Age: 75 Year
  Sex: Female
  Weight: 86.2 kg

DRUGS (7)
  1. METOPROLOL SUCCINATE ER [Suspect]
     Route: 048
  2. CRESTOR [Suspect]
     Route: 048
     Dates: start: 2011
  3. LORAZAPAM [Concomitant]
  4. BABY ASPIRIN [Concomitant]
  5. TYLENOL [Concomitant]
  6. COLACE [Concomitant]
  7. LIPITOR [Concomitant]

REACTIONS (6)
  - Breast cancer female [Unknown]
  - Nephrolithiasis [Unknown]
  - Malaise [Not Recovered/Not Resolved]
  - Myalgia [Not Recovered/Not Resolved]
  - Chest pain [Not Recovered/Not Resolved]
  - Abdominal pain [Not Recovered/Not Resolved]
